FAERS Safety Report 21064774 (Version 2)
Quarter: 2022Q3

REPORT INFORMATION
  Report Type: Spontaneous
  Country: GB (occurrence: GB)
  Receive Date: 20220711
  Receipt Date: 20220729
  Transmission Date: 20221026
  Serious: Yes (Other)
  Sender: FDA-Public Use
  Company Number: GB-MYLANLABS-2022M1051446

PATIENT
  Age: 60 Year
  Sex: Female

DRUGS (5)
  1. CLOZARIL [Suspect]
     Active Substance: CLOZAPINE
     Indication: Schizophrenia
     Dosage: UNK, BID 75 MG (MORNING) AND 100 MG (NIGHT)
     Route: 048
     Dates: start: 20090330
  2. LITHIUM [Concomitant]
     Active Substance: LITHIUM
     Indication: Affective disorder
     Dosage: 200 MILLIGRAM (EXACT START DATE NOT AVAILABLE,  DOSAGE DECREASED FROM 400 MG TO 200 MG NIGHT)
     Route: 048
  3. VALPROATE SODIUM [Concomitant]
     Active Substance: VALPROATE SODIUM
     Indication: Affective disorder
     Dosage: 500 MILLIGRAM, BID (TWICE DAILY, EXACT START DATE NOT AVAILABLE)
     Route: 048
  4. SERTRALINE [Concomitant]
     Active Substance: SERTRALINE HYDROCHLORIDE
     Indication: Anxiety
     Dosage: 50 MILLIGRAM, AM (MORNING, EXACT START DATE NOT AVAILABLE)
     Route: 048
  5. SERTRALINE [Concomitant]
     Active Substance: SERTRALINE HYDROCHLORIDE
     Indication: Depression

REACTIONS (1)
  - Renal cancer [Unknown]

NARRATIVE: CASE EVENT DATE: 20220704
